FAERS Safety Report 13237914 (Version 1)
Quarter: 2017Q1

REPORT INFORMATION
  Report Type: Report from Study
  Country: EC (occurrence: EC)
  Receive Date: 20170216
  Receipt Date: 20170216
  Transmission Date: 20170428
  Serious: Yes (Death, Other)
  Sender: FDA-Public Use
  Company Number: EC-ROCHE-1843074

PATIENT
  Age: 54 Year
  Sex: Female

DRUGS (1)
  1. AVASTIN [Suspect]
     Active Substance: BEVACIZUMAB
     Indication: OVARIAN CANCER
     Route: 042

REACTIONS (4)
  - Disease progression [Fatal]
  - Ascites [Recovering/Resolving]
  - Fluid retention [Fatal]
  - Drug ineffective [Unknown]

NARRATIVE: CASE EVENT DATE: 201505
